FAERS Safety Report 7908894-X (Version None)
Quarter: 2011Q4

REPORT INFORMATION
  Report Type: 
  Country: None (occurrence: None)
  Receive Date: 20111111
  Receipt Date: 20111028
  Transmission Date: 20120403
  Serious: Yes (Other)
  Sender: FDA-Public Use
  Company Number: BR-BRISTOL-MYERS SQUIBB COMPANY-16225369

PATIENT
  Age: 51 Year
  Sex: Female

DRUGS (1)
  1. METFFORMIN HYDROCHLORIDE [Suspect]

REACTIONS (4)
  - DEHYDRATION [None]
  - GASTRIC ULCER HAEMORRHAGE [None]
  - GASTRIC ULCER [None]
  - PRURITUS [None]
